FAERS Safety Report 22223337 (Version 4)
Quarter: 2025Q3

REPORT INFORMATION
  Report Type: Spontaneous
  Country: AU (occurrence: AU)
  Receive Date: 20230418
  Receipt Date: 20250711
  Transmission Date: 20251020
  Serious: Yes (Life-Threatening, Hospitalization, Other)
  Sender: NOVARTIS
  Company Number: AU-002147023-NVSC2023AU087743

PATIENT
  Age: 4 Year
  Sex: Female
  Weight: 19 kg

DRUGS (4)
  1. JADENU [Suspect]
     Active Substance: DEFERASIROX
     Indication: Iron overload
     Dosage: 180 MG, BID
     Route: 048
     Dates: start: 20210405, end: 20221226
  2. JADENU [Suspect]
     Active Substance: DEFERASIROX
     Dosage: 5 MG/KG, QD (10 MG/KG/DAY)
     Route: 065
     Dates: start: 20210405, end: 20210901
  3. JADENU [Suspect]
     Active Substance: DEFERASIROX
     Dosage: 10 MG/KG, QD (10 MG/KG/DAY)
     Route: 065
     Dates: start: 20210901, end: 20220719
  4. JADENU [Suspect]
     Active Substance: DEFERASIROX
     Dosage: 19 MG/KG, QD (19 MG/KG/DAY)
     Route: 065
     Dates: start: 20220719, end: 20221227

REACTIONS (3)
  - Hyperammonaemic encephalopathy [Recovered/Resolved]
  - Renal tubular acidosis [Recovered/Resolved]
  - Confusional state [Unknown]

NARRATIVE: CASE EVENT DATE: 20221226
